FAERS Safety Report 16319802 (Version 2)
Quarter: 2019Q3

REPORT INFORMATION
  Report Type: Spontaneous
  Country: JP (occurrence: JP)
  Receive Date: 20190516
  Receipt Date: 20190704
  Transmission Date: 20191004
  Serious: Yes (Hospitalization)
  Sender: FDA-Public Use
  Company Number: JP-ASTRAZENECA-2019SE71690

PATIENT
  Age: 70 Year
  Sex: Female
  Weight: 45 kg

DRUGS (8)
  1. LUNESTA [Concomitant]
     Active Substance: ESZOPICLONE
     Indication: INSOMNIA
     Route: 048
     Dates: start: 20190303
  2. BESOFTEN [Concomitant]
     Active Substance: PENTOSAN POLYSULFATE SODIUM
     Indication: RASH
     Dosage: A SMALL AMOUNT, TWO OR THREE TIMES DAILY
     Route: 062
     Dates: start: 20190301
  3. PREDNISOLONE. [Concomitant]
     Active Substance: PREDNISOLONE
     Dosage: 30.0MG UNKNOWN
  4. PREDNISOLONE. [Concomitant]
     Active Substance: PREDNISOLONE
     Dosage: REDUCED TO 15 MG UNKNOWN
     Dates: start: 20190529
  5. TAGRISSO [Suspect]
     Active Substance: OSIMERTINIB
     Indication: NON-SMALL CELL LUNG CANCER
     Route: 048
     Dates: start: 20190302, end: 20190508
  6. PREDNISOLONE. [Concomitant]
     Active Substance: PREDNISOLONE
     Dosage: REDUCED TO 20 MG UNKNOWN
     Dates: start: 20190522
  7. PREDNISOLONE. [Concomitant]
     Active Substance: PREDNISOLONE
     Dosage: REDUCED TO 10 MG UNKNOWN
     Dates: start: 20190605
  8. PREDNISOLONE. [Concomitant]
     Active Substance: PREDNISOLONE
     Dosage: REDUCED TO 5 MG UNKNOWN
     Dates: start: 20190612

REACTIONS (4)
  - Interstitial lung disease [Recovering/Resolving]
  - Stomatitis [Recovered/Resolved]
  - Rash [Recovering/Resolving]
  - Diarrhoea [Recovering/Resolving]

NARRATIVE: CASE EVENT DATE: 20190305
